FAERS Safety Report 7155776-X (Version None)
Quarter: 2010Q4

REPORT INFORMATION
  Report Type: 
  Country: None (occurrence: None)
  Receive Date: 20101123
  Receipt Date: 20100818
  Transmission Date: 20110411
  Serious: No
  Sender: FDA-Public Use
  Company Number: 006215

PATIENT
  Sex: Female

DRUGS (6)
  1. CIMZIA [Suspect]
     Indication: CROHN'S DISEASE
     Dosage: SUBCUTANEOUS, 400 MG 1X/MONTH SUBCUTANEOUS
     Route: 058
     Dates: start: 20100106, end: 20100203
  2. CIMZIA [Suspect]
     Indication: PROCTITIS ULCERATIVE
     Dosage: SUBCUTANEOUS, 400 MG 1X/MONTH SUBCUTANEOUS
     Route: 058
     Dates: start: 20100106, end: 20100203
  3. CIMZIA [Suspect]
     Indication: CROHN'S DISEASE
     Dosage: SUBCUTANEOUS, 400 MG 1X/MONTH SUBCUTANEOUS
     Route: 058
     Dates: start: 20100101
  4. CIMZIA [Suspect]
     Indication: PROCTITIS ULCERATIVE
     Dosage: SUBCUTANEOUS, 400 MG 1X/MONTH SUBCUTANEOUS
     Route: 058
     Dates: start: 20100101
  5. CIMZIA [Suspect]
  6. SEASONALE [Concomitant]

REACTIONS (4)
  - ALOPECIA [None]
  - NASOPHARYNGITIS [None]
  - OFF LABEL USE [None]
  - VISION BLURRED [None]
